FAERS Safety Report 9565905 (Version 2)
Quarter: 2013Q4

REPORT INFORMATION
  Report Type: Spontaneous
  Country: ES (occurrence: ES)
  Receive Date: 20130930
  Receipt Date: 20131009
  Transmission Date: 20140711
  Serious: Yes (Death, Hospitalization)
  Sender: FDA-Public Use
  Company Number: ES-B.I. PHARMACEUTICALS,INC./RIDGEFIELD-2013-ES-00536ES

PATIENT
  Age: 77 Year
  Sex: Female

DRUGS (3)
  1. PRADAXA [Suspect]
     Indication: ATRIAL FIBRILLATION
     Dosage: 220 MG
     Route: 048
     Dates: start: 20130820, end: 20130831
  2. DIGOXINA [Suspect]
  3. AMOXICILINA/CLAVULANIC [Suspect]
     Indication: BRONCHITIS

REACTIONS (6)
  - Pulmonary oedema [Fatal]
  - Renal failure acute [Fatal]
  - Cardio-respiratory arrest [Fatal]
  - Upper gastrointestinal haemorrhage [Unknown]
  - Diarrhoea [Unknown]
  - Bronchitis [Unknown]
